FAERS Safety Report 7804920-7 (Version None)
Quarter: 2011Q4

REPORT INFORMATION
  Report Type: 
  Country: None (occurrence: None)
  Receive Date: 20111010
  Receipt Date: 20110926
  Transmission Date: 20120403
  Serious: Yes (Hospitalization)
  Sender: FDA-Public Use
  Company Number: US-BAYER-201023485NA

PATIENT
  Age: 66 Year
  Sex: Male
  Weight: 88.45 kg

DRUGS (17)
  1. CLOPIDOGREL [Interacting]
  2. DIPHENHYDRAMINE HYDROCHLORIDE [Concomitant]
  3. RIVAROXABAN [Interacting]
     Indication: ACUTE CORONARY SYNDROME
     Dosage: 2.5 MG, BID
     Route: 048
     Dates: start: 20090619, end: 20100514
  4. MULTI-VITAMIN [Concomitant]
  5. ZOCOR [Concomitant]
  6. LISINOPRIL [Concomitant]
  7. CALCIUM CARBONATE [Concomitant]
  8. LASIX [Concomitant]
  9. GLIPIZIDE [Concomitant]
  10. COREG [Concomitant]
  11. ZAROXOLYN [Concomitant]
  12. SIMVASTATIN [Concomitant]
  13. METFORMIN HYDROCHLORIDE [Concomitant]
  14. ACETYLSALICYLIC ACID SRT [Suspect]
     Indication: ACUTE CORONARY SYNDROME
  15. PACERONE [Concomitant]
  16. KLOR-CON [Concomitant]
  17. NIASPAN [Concomitant]

REACTIONS (1)
  - MICROCYTIC ANAEMIA [None]
